FAERS Safety Report 8582430-X (Version None)
Quarter: 2012Q3

REPORT INFORMATION
  Report Type: 
  Country: None (occurrence: None)
  Receive Date: 20120809
  Receipt Date: 20120727
  Transmission Date: 20120928
  Serious: Yes (Hospitalization, Other)
  Sender: FDA-Public Use
  Company Number: AU-VIIV HEALTHCARE LIMITED-B0821448A

PATIENT
  Age: 36 Year
  Sex: Female

DRUGS (3)
  1. LOPINAVIR AND RITONAVIR [Concomitant]
  2. ABACAVIR SULFATE/LAMIVUDINE [Suspect]
     Indication: ANTIRETROVIRAL THERAPY
  3. COMBIVIR [Suspect]
     Indication: ANTIRETROVIRAL THERAPY

REACTIONS (4)
  - GESTATIONAL DIABETES [None]
  - HUMAN CHORIONIC GONADOTROPIN POSITIVE [None]
  - MATERNAL EXPOSURE DURING PREGNANCY [None]
  - LIVE BIRTH [None]
